FAERS Safety Report 7773901-4 (Version None)
Quarter: 2011Q3

REPORT INFORMATION
  Report Type: 
  Country: None (occurrence: None)
  Receive Date: 20110923
  Receipt Date: 20110920
  Transmission Date: 20111222
  Serious: Yes (Other)
  Sender: FDA-Public Use
  Company Number: US-PFIZER INC-2011223111

PATIENT
  Sex: Female
  Weight: 81.6 kg

DRUGS (5)
  1. SYNTHROID [Concomitant]
     Dosage: UNK
  2. OMEPRAZOLE [Concomitant]
     Dosage: UNK
  3. METFORMIN [Concomitant]
     Dosage: UNK
  4. DEPO-PROVERA [Suspect]
     Indication: CONTRACEPTION
     Dosage: UNK
     Dates: start: 20110901
  5. SYMBICORT [Concomitant]
     Dosage: UNK

REACTIONS (3)
  - BLINDNESS [None]
  - VISION BLURRED [None]
  - VISUAL IMPAIRMENT [None]
